FAERS Safety Report 8174476-0 (Version None)
Quarter: 2012Q1

REPORT INFORMATION
  Report Type: 
  Country: None (occurrence: None)
  Receive Date: 20120229
  Receipt Date: 20120224
  Transmission Date: 20120608
  Serious: No
  Sender: FDA-Public Use
  Company Number: US-BAYER-2012-019838

PATIENT
  Age: 61 Year
  Sex: Female

DRUGS (1)
  1. MAGNEVIST [Suspect]
     Indication: SCAN BRAIN
     Dosage: 7 ML, ONCE
     Route: 042
     Dates: start: 20120224, end: 20120224

REACTIONS (1)
  - URTICARIA [None]
